FAERS Safety Report 24454349 (Version 2)
Quarter: 2024Q4

REPORT INFORMATION
  Report Type: Report from Study
  Country: US (occurrence: US)
  Receive Date: 20241017
  Receipt Date: 20241018
  Transmission Date: 20250115
  Serious: No
  Sender: ROCHE
  Company Number: US-ROCHE-3402964

PATIENT
  Age: 35 Year
  Sex: Female

DRUGS (2)
  1. RITUXAN [Suspect]
     Active Substance: RITUXIMAB
     Indication: Stiff person syndrome
     Dosage: DATE OF TREATMENT; 19/OCT/2023,15/APR/2024.
     Route: 041
  2. RITUXAN [Suspect]
     Active Substance: RITUXIMAB
     Indication: Antibody test positive
     Dosage: 500 MG SINGLE-USE VIAL
     Route: 041
     Dates: start: 20220803, end: 20230803

REACTIONS (2)
  - Off label use [Unknown]
  - No adverse event [Unknown]
